FAERS Safety Report 9225708 (Version 1)
Quarter: 2013Q2

REPORT INFORMATION
  Report Type: Spontaneous
  Country: US (occurrence: US)
  Receive Date: 20130411
  Receipt Date: 20130411
  Transmission Date: 20140414
  Serious: Yes (Other)
  Sender: FDA-Public Use
  Company Number: US-ELI_LILLY_AND_COMPANY-US201304001054

PATIENT
  Age: 57 Year
  Sex: Female

DRUGS (3)
  1. FORTEO [Suspect]
     Indication: OSTEOPOROSIS
     Dosage: UNK UNK, QD
     Dates: start: 20060401, end: 20080401
  2. FORTEO [Suspect]
     Dosage: UNK, QD
     Dates: start: 20130101
  3. FOSAMAX [Concomitant]

REACTIONS (3)
  - Femur fracture [Unknown]
  - Bone density decreased [Unknown]
  - Incorrect drug administration duration [Unknown]
